FAERS Safety Report 21203209 (Version 1)
Quarter: 2022Q3

REPORT INFORMATION
  Report Type: Spontaneous
  Country: US (occurrence: None)
  Receive Date: 20220811
  Receipt Date: 20220811
  Transmission Date: 20221027
  Serious: Yes (Death, Life-Threatening)
  Sender: FDA-Public Use
  Company Number: None

PATIENT
  Age: 71 Year
  Sex: Male

DRUGS (2)
  1. CITROMA [Suspect]
     Active Substance: MAGNESIUM CITRATE
     Indication: Constipation
     Route: 048
  2. CITROMA [Suspect]
     Active Substance: MAGNESIUM CITRATE
     Dates: start: 20220507, end: 20220511

REACTIONS (4)
  - Pyrexia [None]
  - Escherichia infection [None]
  - Product contamination [None]
  - Pain [None]

NARRATIVE: CASE EVENT DATE: 20220507
